FAERS Safety Report 9975104 (Version 1)
Quarter: 2014Q1

REPORT INFORMATION
  Report Type: Report from Study
  Country: US (occurrence: US)
  Receive Date: 20140306
  Receipt Date: 20140306
  Transmission Date: 20141002
  Serious: No
  Sender: FDA-Public Use
  Company Number: US-ABBVIE-13P-163-1161384-00

PATIENT
  Age: 56 Year
  Sex: Male

DRUGS (4)
  1. HUMIRA [Suspect]
     Indication: COLITIS ULCERATIVE
     Dosage: X4
     Dates: start: 20131019
  2. BENTYL [Concomitant]
     Indication: ABDOMINAL PAIN UPPER
  3. BENTYL [Concomitant]
     Indication: COLITIS ULCERATIVE
  4. LIALDA [Concomitant]
     Indication: COLITIS ULCERATIVE
     Dosage: PILLS

REACTIONS (1)
  - Injection site pain [Recovered/Resolved]
